FAERS Safety Report 12854914 (Version 5)
Quarter: 2017Q1

REPORT INFORMATION
  Report Type: Spontaneous
  Country: AU (occurrence: AU)
  Receive Date: 20161017
  Receipt Date: 20170329
  Transmission Date: 20170428
  Serious: Yes (Death)
  Sender: FDA-Public Use
  Company Number: AU-JNJFOC-20161005839

PATIENT

DRUGS (1)
  1. OLYSIO [Suspect]
     Active Substance: SIMEPREVIR
     Indication: HEPATITIS C
     Route: 065

REACTIONS (5)
  - Off label use [Unknown]
  - Treatment failure [Unknown]
  - Drug prescribing error [Unknown]
  - Hepatic failure [Unknown]
  - Hepatitis B [Fatal]
